FAERS Safety Report 11439755 (Version 1)
Quarter: 2015Q3

REPORT INFORMATION
  Report Type: Spontaneous
  Country: US (occurrence: US)
  Receive Date: 20150901
  Receipt Date: 20150901
  Transmission Date: 20151125
  Serious: Yes (Other)
  Sender: FDA-Public Use
  Company Number: US-ROCHE-1092022

PATIENT
  Sex: Male

DRUGS (1)
  1. PEGASYS [Suspect]
     Active Substance: PEGINTERFERON ALFA-2A
     Indication: HEPATITIS C
     Route: 065
     Dates: start: 1990, end: 1999

REACTIONS (7)
  - Visual field defect [Unknown]
  - Panic attack [Unknown]
  - Suicide attempt [Unknown]
  - Fatigue [Unknown]
  - Aggression [Unknown]
  - Depression [Not Recovered/Not Resolved]
  - Mood swings [Unknown]
